FAERS Safety Report 24026946 (Version 2)
Quarter: 2024Q2

REPORT INFORMATION
  Report Type: Report from Study
  Country: LT (occurrence: LT)
  Receive Date: 20240628
  Receipt Date: 20240628
  Transmission Date: 20240716
  Serious: No
  Sender: FDA-Public Use
  Company Number: LT-ROCHE-3567963

PATIENT
  Age: 45 Year
  Sex: Male
  Weight: 100.0 kg

DRUGS (3)
  1. ALECTINIB [Suspect]
     Active Substance: ALECTINIB
     Indication: Lung cancer metastatic
     Route: 048
     Dates: start: 20230419
  2. IBUPROFEN [Concomitant]
     Active Substance: IBUPROFEN
     Dosage: FREQUENCY TEXT:PRN
     Route: 048
     Dates: start: 202303
  3. SULTAMICILLIN [Concomitant]
     Active Substance: SULTAMICILLIN
     Route: 048
     Dates: start: 20240131, end: 20240209

REACTIONS (1)
  - Bronchitis [Recovered/Resolved]

NARRATIVE: CASE EVENT DATE: 20240131
